FAERS Safety Report 25668248 (Version 2)
Quarter: 2025Q4

REPORT INFORMATION
  Report Type: Report from Study
  Country: US (occurrence: US)
  Receive Date: 20250812
  Receipt Date: 20251020
  Transmission Date: 20260117
  Serious: Yes (Other)
  Sender: ACADIA PHARMACEUTICALS
  Company Number: US-ACADIA PHARMACEUTICALS INC.-ACA-2025-PIM-009029

PATIENT
  Age: 73 Year
  Sex: Male

DRUGS (1)
  1. NUPLAZID [Suspect]
     Active Substance: PIMAVANSERIN TARTRATE
     Indication: Parkinson^s disease psychosis
     Dosage: 34 MILLIGRAM, QD
     Route: 048

REACTIONS (6)
  - Hip fracture [Not Recovered/Not Resolved]
  - Hallucination [Not Recovered/Not Resolved]
  - Fall [Not Recovered/Not Resolved]
  - Therapy interrupted [Recovered/Resolved]
  - Product distribution issue [Recovered/Resolved]
  - Product use issue [Recovered/Resolved]

NARRATIVE: CASE EVENT DATE: 20251005
